FAERS Safety Report 16809102 (Version 2)
Quarter: 2019Q3

REPORT INFORMATION
  Report Type: Spontaneous
  Country: ES (occurrence: ES)
  Receive Date: 20190916
  Receipt Date: 20190924
  Transmission Date: 20191005
  Serious: Yes (Death)
  Sender: FDA-Public Use
  Company Number: ES-ROCHE-2400796

PATIENT
  Sex: Male

DRUGS (4)
  1. DEXAMETHASONE. [Suspect]
     Active Substance: DEXAMETHASONE
     Indication: DIFFUSE LARGE B-CELL LYMPHOMA
     Route: 037
  2. CYTARABINE. [Suspect]
     Active Substance: CYTARABINE
     Indication: DIFFUSE LARGE B-CELL LYMPHOMA
     Route: 037
  3. CISPLATIN. [Suspect]
     Active Substance: CISPLATIN
     Indication: DIFFUSE LARGE B-CELL LYMPHOMA
     Route: 037
  4. RITUXIMAB. [Suspect]
     Active Substance: RITUXIMAB
     Indication: DIFFUSE LARGE B-CELL LYMPHOMA
     Route: 065

REACTIONS (14)
  - Areflexia [Fatal]
  - Hypercoagulation [Fatal]
  - Inflammation [Fatal]
  - Diplopia [Fatal]
  - Urinary retention [Fatal]
  - Encephalopathy [Fatal]
  - Hypoaesthesia [Fatal]
  - Muscular weakness [Fatal]
  - Froin^s syndrome [Fatal]
  - Paraplegia [Fatal]
  - Dysphagia [Fatal]
  - Paresis [Fatal]
  - Bradyphrenia [Fatal]
  - Quadriplegia [Fatal]
